FAERS Safety Report 8574556-1 (Version None)
Quarter: 2012Q3

REPORT INFORMATION
  Report Type: 
  Country: None (occurrence: None)
  Receive Date: 20120806
  Receipt Date: 20120731
  Transmission Date: 20120928
  Serious: Yes (Death)
  Sender: FDA-Public Use
  Company Number: CHPA2012US016809

PATIENT
  Age: 55 Year
  Sex: Male

DRUGS (1)
  1. THERAPEUTIC MINERAL ICE [Suspect]
     Dosage: UNK, UNK
     Route: 061

REACTIONS (2)
  - EXPIRED DRUG ADMINISTERED [None]
  - DEATH [None]
